FAERS Safety Report 5849701-9 (Version None)
Quarter: 2008Q3

REPORT INFORMATION
  Report Type: 
  Country: None (occurrence: None)
  Receive Date: 20080819
  Receipt Date: 20080808
  Transmission Date: 20090109
  Serious: Yes (Hospitalization, Other)
  Sender: FDA-Public Use
  Company Number: US-JNJFOC-20080601595

PATIENT
  Sex: Female
  Weight: 58.06 kg

DRUGS (7)
  1. DURAGESIC-100 [Suspect]
     Dosage: 2 X 12.5 UG/HR PATCHES
     Route: 062
  2. DURAGESIC-100 [Suspect]
     Indication: BACK PAIN
     Route: 062
  3. FLEXERIL [Concomitant]
     Indication: MUSCLE SPASMS
     Route: 048
  4. XANAX [Concomitant]
     Route: 048
  5. XANAX [Concomitant]
     Indication: ANXIETY
     Dosage: HALF OF A 0.5 MG TABLET
     Route: 048
  6. LOMOTIL [Concomitant]
     Indication: DIARRHOEA
     Route: 048
  7. LEVOTHYROXINE SODIUM [Concomitant]
     Route: 048

REACTIONS (12)
  - ANAEMIA [None]
  - BACK INJURY [None]
  - BLOOD CHOLESTEROL INCREASED [None]
  - BREAKTHROUGH PAIN [None]
  - DEPRESSION [None]
  - DYSPEPSIA [None]
  - FALL [None]
  - HYPERTENSION [None]
  - MALNUTRITION [None]
  - PHARMACEUTICAL PRODUCT COMPLAINT [None]
  - POOR DENTAL CONDITION [None]
  - WRONG TECHNIQUE IN DRUG USAGE PROCESS [None]
